FAERS Safety Report 6322271-7 (Version None)
Quarter: 2009Q3

REPORT INFORMATION
  Report Type: 
  Country: None (occurrence: None)
  Receive Date: 20090821
  Receipt Date: 20090821
  Transmission Date: 20100115
  Serious: Yes (Death)
  Sender: FDA-Public Use
  Company Number: None

PATIENT
  Sex: Male

DRUGS (12)
  1. REVLIMID [Suspect]
  2. ALLOPURINOL [Concomitant]
  3. PRILOSEC [Concomitant]
  4. TRENTAL [Concomitant]
  5. RENAGEL [Concomitant]
  6. NOVOLIN R [Concomitant]
  7. LEVOTHROID [Concomitant]
  8. ZOCOR [Concomitant]
  9. METOPROLOL [Concomitant]
  10. HYTRIN [Concomitant]
  11. PLAVIX [Concomitant]
  12. TRAZODONE [Concomitant]

REACTIONS (1)
  - SEDATION [None]
